FAERS Safety Report 13587561 (Version 1)
Quarter: 2017Q2

REPORT INFORMATION
  Report Type: Spontaneous
  Country: US (occurrence: US)
  Receive Date: 20170526
  Receipt Date: 20170526
  Transmission Date: 20170830
  Serious: No
  Sender: FDA-Public Use
  Company Number: None

PATIENT
  Age: 5 Year
  Sex: Female

DRUGS (1)
  1. HUMATROPE [Suspect]
     Active Substance: SOMATROPIN
     Indication: CONGENITAL ANOMALY
     Dosage: 0.21 ML (0.7 MG) DAILY SUBCUTANEOUSLY
     Route: 058
     Dates: start: 20170221

REACTIONS (1)
  - Headache [None]

NARRATIVE: CASE EVENT DATE: 20170418
